FAERS Safety Report 20079191 (Version 1)
Quarter: 2021Q4

REPORT INFORMATION
  Report Type: Spontaneous
  Country: US (occurrence: US)
  Receive Date: 20211117
  Receipt Date: 20211117
  Transmission Date: 20220303
  Serious: No
  Sender: FDA-Public Use
  Company Number: US-AMGEN-USASP2021171787

PATIENT
  Age: 62 Year
  Sex: Female

DRUGS (1)
  1. REPATHA [Suspect]
     Active Substance: EVOLOCUMAB
     Indication: Hypercholesterolaemia
     Dosage: 140 MG/ML, Q3WK
     Route: 065

REACTIONS (6)
  - Pain [Unknown]
  - Device difficult to use [Unknown]
  - Abdominal distension [Unknown]
  - Off label use [Unknown]
  - Blood triglycerides increased [Unknown]
  - Cough [Unknown]

NARRATIVE: CASE EVENT DATE: 20211029
